FAERS Safety Report 9692781 (Version 1)
Quarter: 2013Q4

REPORT INFORMATION
  Report Type: Spontaneous
  Country: US (occurrence: None)
  Receive Date: 20131115
  Receipt Date: 20131115
  Transmission Date: 20140711
  Serious: Yes (Life-Threatening, Hospitalization, Disabling, Other)
  Sender: FDA-Public Use
  Company Number: None

PATIENT
  Age: 50 Year
  Sex: Female
  Weight: 88 kg

DRUGS (2)
  1. EFFEXOR 75 [Suspect]
     Indication: HOT FLUSH
     Route: 048
     Dates: start: 20121129, end: 20130721
  2. EFFEXOR 75 [Suspect]
     Indication: DEPRESSION
     Route: 048
     Dates: start: 20121129, end: 20130721

REACTIONS (14)
  - Swelling [None]
  - Heat oedema [None]
  - Hypersomnia [None]
  - Delirium [None]
  - Dizziness [None]
  - Blood sodium decreased [None]
  - Cellulitis [None]
  - Cellulitis staphylococcal [None]
  - Hypoaesthesia [None]
  - Pain [None]
  - Depressed level of consciousness [None]
  - Sleep attacks [None]
  - Speech disorder [None]
  - Condition aggravated [None]
